FAERS Safety Report 5555024-8 (Version None)
Quarter: 2007Q4

REPORT INFORMATION
  Report Type: 
  Country: None (occurrence: None)
  Receive Date: 20071213
  Receipt Date: 20070807
  Transmission Date: 20080405
  Serious: No
  Sender: FDA-Public Use
  Company Number: US-AMGEN-KDL234316

PATIENT
  Sex: Female

DRUGS (1)
  1. ENBREL [Suspect]
     Indication: PSORIASIS
     Route: 058
     Dates: start: 20070101

REACTIONS (6)
  - ASTHENOPIA [None]
  - EAR PAIN [None]
  - HEADACHE [None]
  - HERPES ZOSTER [None]
  - PAIN [None]
  - SKIN LESION [None]
